FAERS Safety Report 15398538 (Version 1)
Quarter: 2018Q3

REPORT INFORMATION
  Report Type: Spontaneous
  Country: US (occurrence: US)
  Receive Date: 20180913
  Receipt Date: 20180913
  Transmission Date: 20181010
  Serious: No
  Sender: FDA-Public Use
  Company Number: None

PATIENT
  Age: 56 Year
  Sex: Female
  Weight: 65.7 kg

DRUGS (8)
  1. TRIMETHOPRIM. [Suspect]
     Active Substance: TRIMETHOPRIM
     Indication: SKIN ULCER
     Route: 048
     Dates: start: 20171023, end: 20171028
  2. ZESTRIL [Concomitant]
     Active Substance: LISINOPRIL
     Dates: start: 20130919, end: 20180814
  3. DICLOXACILLIN [Concomitant]
     Active Substance: DICLOXACILLIN
     Dates: start: 20171023, end: 20171101
  4. SPIRONOLACTONE. [Concomitant]
     Active Substance: SPIRONOLACTONE
     Dates: start: 20161108
  5. KEPPRA [Concomitant]
     Active Substance: LEVETIRACETAM
     Dates: start: 20130625
  6. METHADONE [Concomitant]
     Active Substance: METHADONE HYDROCHLORIDE
     Dates: start: 20100512
  7. VIMPAT [Concomitant]
     Active Substance: LACOSAMIDE
     Dates: start: 20161108
  8. SULFAMETHOXAZOLE [Suspect]
     Active Substance: SULFAMETHOXAZOLE
     Indication: SKIN ULCER
     Route: 048
     Dates: start: 20171023, end: 20171028

REACTIONS (3)
  - Dyspnoea [None]
  - Throat tightness [None]
  - Nausea [None]

NARRATIVE: CASE EVENT DATE: 20171028
